FAERS Safety Report 19881045 (Version 1)
Quarter: 2021Q3

REPORT INFORMATION
  Report Type: Report from Study
  Country: DE (occurrence: DE)
  Receive Date: 20210924
  Receipt Date: 20210924
  Transmission Date: 20211014
  Serious: Yes (Death, Hospitalization, Other)
  Sender: FDA-Public Use
  Company Number: DE-TEVA-2021-DE-1956506

PATIENT
  Age: 78 Year
  Sex: Female
  Weight: 95.8 kg

DRUGS (13)
  1. PREDNISOLONE. [Concomitant]
     Active Substance: PREDNISOLONE
     Indication: RHEUMATIC DISORDER
     Dosage: 5 OT
     Route: 048
     Dates: start: 2017
  2. FULVESTRANT. [Suspect]
     Active Substance: FULVESTRANT
     Dosage: 500 MG, QW4:UNIT DOSE:2000MILLIGRAM
     Route: 030
     Dates: start: 20191220, end: 20200416
  3. KISQALI [Suspect]
     Active Substance: RIBOCICLIB
     Indication: BREAST CANCER METASTATIC
     Dosage: 600 MILLIGRAM DAILY; QD
     Route: 048
     Dates: start: 20191220, end: 20200109
  4. CONCOR [Concomitant]
     Active Substance: BISOPROLOL FUMARATE
     Indication: HYPERTENSION
     Dosage: 5 OT
     Route: 048
  5. IMIGRAN [Concomitant]
     Active Substance: SUMATRIPTAN SUCCINATE
     Indication: MIGRAINE
     Dosage: 100 OT, PRN
     Route: 048
  6. ATACAND [Concomitant]
     Active Substance: CANDESARTAN CILEXETIL
     Indication: HYPERTENSION
     Dosage: 8/12.5
     Route: 048
  7. IBRANCE [Suspect]
     Active Substance: PALBOCICLIB
     Indication: PRODUCT USED FOR UNKNOWN INDICATION
     Dosage: UNK:THERAPY START DATE :THERAPY END DATE:ASKU
     Route: 065
  8. BEVACIZUMAB. [Suspect]
     Active Substance: BEVACIZUMAB
     Indication: BREAST CANCER METASTATIC
     Dosage: 15 MG/KG DAILY; QD
     Route: 042
     Dates: start: 20200519
  9. THYRONAJOD [Concomitant]
     Active Substance: LEVOTHYROXINE SODIUM\POTASSIUM IODIDE
     Indication: HYPOTHYROIDISM
     Dosage: 0.05 OT
     Route: 048
     Dates: start: 1990
  10. FULVESTRANT. [Suspect]
     Active Substance: FULVESTRANT
     Indication: BREAST CANCER METASTATIC
     Dosage: 500 MG, Q4W
     Route: 065
     Dates: start: 20191220, end: 20200103
  11. HYDROMORPHONE [Concomitant]
     Active Substance: HYDROMORPHONE
     Indication: RHEUMATIC DISORDER
     Dosage: 12 OT
     Route: 048
  12. CAPECITABINE. [Suspect]
     Active Substance: CAPECITABINE
     Indication: BREAST CANCER METASTATIC
     Dosage: 1000 MG/M2 DAILY; QD
     Route: 048
     Dates: start: 20200519, end: 20200810
  13. TORASEMIDE [Concomitant]
     Active Substance: TORSEMIDE
     Indication: HYPERTENSION
     Dosage: 10 OT
     Route: 048

REACTIONS (8)
  - Dyspnoea [Not Recovered/Not Resolved]
  - Fatigue [Not Recovered/Not Resolved]
  - Thrombocytopenia [Recovered/Resolved]
  - Nausea [Recovered/Resolved]
  - Breast cancer metastatic [Fatal]
  - Hyperhidrosis [Recovering/Resolving]
  - Malignant neoplasm progression [Fatal]
  - Bronchitis [Recovered/Resolved]

NARRATIVE: CASE EVENT DATE: 202001
